FAERS Safety Report 25444427 (Version 2)
Quarter: 2025Q2

REPORT INFORMATION
  Report Type: Report from Study
  Country: DE (occurrence: DE)
  Receive Date: 20250617
  Receipt Date: 20250624
  Transmission Date: 20250716
  Serious: Yes (Hospitalization, Other)
  Sender: AMGEN
  Company Number: DE-002147023-NVSC2021DE070211

PATIENT
  Sex: Male

DRUGS (16)
  1. ADALIMUMAB [Suspect]
     Active Substance: ADALIMUMAB
     Indication: Psoriatic arthropathy
     Route: 065
     Dates: start: 20201007, end: 20210511
  2. ADALIMUMAB [Suspect]
     Active Substance: ADALIMUMAB
     Route: 065
     Dates: start: 20210702, end: 20210728
  3. ADALIMUMAB [Suspect]
     Active Substance: ADALIMUMAB
     Route: 065
     Dates: end: 20210511
  4. ADALIMUMAB [Suspect]
     Active Substance: ADALIMUMAB
     Route: 065
     Dates: end: 20210728
  5. CELECOXIB [Suspect]
     Active Substance: CELECOXIB
     Indication: Psoriatic arthropathy
     Dosage: 200 MG, QD
     Route: 065
     Dates: start: 20200107, end: 20200120
  6. CELECOXIB [Suspect]
     Active Substance: CELECOXIB
     Dosage: 200 MG, QD; 07-JAN-2020 00:00
     Route: 065
     Dates: end: 20200120
  7. COSENTYX [Suspect]
     Active Substance: SECUKINUMAB
     Indication: Psoriatic arthropathy
     Dosage: 150 MG, QMO (INJECTION)
     Route: 050
     Dates: start: 20180803, end: 20200406
  8. COSENTYX [Suspect]
     Active Substance: SECUKINUMAB
     Dosage: 300 MG, QMO (INJECTION)
     Route: 050
     Dates: start: 20200407, end: 20200506
  9. COSENTYX [Suspect]
     Active Substance: SECUKINUMAB
     Dosage: 150 MG, QMO
     Route: 065
     Dates: start: 20200707, end: 20200906
  10. COSENTYX [Suspect]
     Active Substance: SECUKINUMAB
     Dosage: 200 MG, QD
     Route: 065
     Dates: start: 20200107
  11. TREMFYA [Suspect]
     Active Substance: GUSELKUMAB
     Indication: Psoriatic arthropathy
     Route: 065
     Dates: start: 20210512, end: 20210701
  12. TREMFYA [Suspect]
     Active Substance: GUSELKUMAB
     Route: 065
     Dates: end: 20210701
  13. TALTZ [Suspect]
     Active Substance: IXEKIZUMAB
     Indication: Psoriatic arthropathy
     Route: 065
     Dates: start: 20210728, end: 20240731
  14. TALTZ [Suspect]
     Active Substance: IXEKIZUMAB
     Route: 065
     Dates: end: 20240731
  15. BIMZELX [Suspect]
     Active Substance: BIMEKIZUMAB-BKZX
     Indication: Psoriatic arthropathy
     Route: 065
     Dates: start: 20240731
  16. BIMZELX [Suspect]
     Active Substance: BIMEKIZUMAB-BKZX
     Route: 065

REACTIONS (3)
  - Cholangitis [Recovered/Resolved]
  - Cholangitis [Recovered/Resolved]
  - Cholecystitis [Recovered/Resolved]
